FAERS Safety Report 4483418-0 (Version None)
Quarter: 2004Q4

REPORT INFORMATION
  Report Type: 
  Country: None (occurrence: None)
  Receive Date: 20041020
  Receipt Date: 20041006
  Transmission Date: 20050328
  Serious: Yes (Hospitalization)
  Sender: FDA-Public Use
  Company Number: USA031152265

PATIENT
  Age: 83 Year
  Sex: Female
  Weight: 64 kg

DRUGS (3)
  1. FORTEO [Suspect]
     Indication: OSTEOPOROSIS
     Dosage: 20 UG DAY
     Dates: start: 20031027
  2. LISINOPRIL [Concomitant]
  3. PRAVACHOL [Concomitant]

REACTIONS (7)
  - BACK PAIN [None]
  - BUTTOCK PAIN [None]
  - CATARACT [None]
  - DIPLEGIA [None]
  - KNEE ARTHROPLASTY [None]
  - MYALGIA [None]
  - PHARMACEUTICAL PRODUCT COMPLAINT [None]
